FAERS Safety Report 25829837 (Version 1)
Quarter: 2025Q3

REPORT INFORMATION
  Report Type: Spontaneous
  Country: BR (occurrence: BR)
  Receive Date: 20250922
  Receipt Date: 20250922
  Transmission Date: 20251020
  Serious: Yes (Other)
  Sender: TEVA
  Company Number: BR-TEVA-VS-3373315

PATIENT
  Sex: Female

DRUGS (2)
  1. CARBOPLATIN [Suspect]
     Active Substance: CARBOPLATIN
     Indication: Product used for unknown indication
     Route: 065
  2. CARBOPLATIN [Suspect]
     Active Substance: CARBOPLATIN
     Indication: Product used for unknown indication
     Route: 065

REACTIONS (8)
  - Heart rate increased [Recovered/Resolved]
  - Erythema [Unknown]
  - Pruritus [Unknown]
  - Hypotension [Recovered/Resolved]
  - Hyperhidrosis [Unknown]
  - Vision blurred [Unknown]
  - Oxygen saturation decreased [Recovered/Resolved]
  - Malaise [Not Recovered/Not Resolved]
